FAERS Safety Report 23156137 (Version 1)
Quarter: 2023Q4

REPORT INFORMATION
  Report Type: Spontaneous
  Country: DE (occurrence: DE)
  Receive Date: 20231107
  Receipt Date: 20231107
  Transmission Date: 20240109
  Serious: Yes (Hospitalization)
  Sender: FDA-Public Use
  Company Number: DE-BAXTER-2023BAX029888

PATIENT
  Age: 76 Year
  Sex: Male
  Weight: 78 kg

DRUGS (48)
  1. ABSTRAL [Suspect]
     Active Substance: FENTANYL CITRATE
     Indication: Breakthrough pain
     Dosage: 100 UG (100 MICROGRAM PIECE)
     Route: 065
  2. ACTRAPID [Suspect]
     Active Substance: INSULIN HUMAN
     Indication: Product used for unknown indication
     Dosage: (INSULIN) (ACCORDING TO PLAN)
     Route: 058
  3. ASPIRIN [Suspect]
     Active Substance: ASPIRIN
     Indication: Product used for unknown indication
     Dosage: 100 MG, BID(100 MG (1X1), PIECE ONCE IN THE MORNING AND ONCE IN THE NIGHT)
     Route: 048
  4. BISOPROLOL [Suspect]
     Active Substance: BISOPROLOL\BISOPROLOL FUMARATE
     Indication: Product used for unknown indication
     Dosage: QD (1.25 MG PIECE ONCE IN THE EVENING)
     Route: 048
  5. DEXPANTHENOL [Suspect]
     Active Substance: DEXPANTHENOL
     Indication: Product used for unknown indication
     Dosage: 1 DOSAGE FORM, QD (SINGLE DOSE ONCE IN THE EVENING)
     Route: 065
  6. DEXPANTHENOL [Suspect]
     Active Substance: DEXPANTHENOL
     Dosage: QD (ONCE IN THE NIGHT)
     Route: 065
  7. CERNEVIT [Suspect]
     Active Substance: VITAMINS
     Indication: Parenteral nutrition
     Dosage: QD (AT AN UNSPECIFIED DOSE ONCE IN THE MORNING AS SHORT INFUSION)
     Route: 042
  8. ENOXAPARIN SODIUM [Suspect]
     Active Substance: ENOXAPARIN SODIUM
     Indication: Product used for unknown indication
     Dosage: 0.4 MG, BID (ONCE IN THE MORNING AND ONCE IN THE NIGHT, DISCONTINUE IF SUFFICIENT MOBILIZATION)
     Route: 065
  9. FENTANYL [Suspect]
     Active Substance: FENTANYL\FENTANYL CITRATE
     Dosage: (12.5 MICROGRAM PER HOUR, PLEASE DISCONTINUE)
     Route: 065
     Dates: end: 20230814
  10. FENTANYL [Suspect]
     Active Substance: FENTANYL\FENTANYL CITRATE
     Dosage: (1A PHARMA 12 UG/H MATRIXPFL 2.89MG/PF) CHANGE EVERY 3 DAYS)
     Route: 065
  11. FENTANYL [Suspect]
     Active Substance: FENTANYL\FENTANYL CITRATE
     Indication: Product used for unknown indication
     Dosage: (1A PHARMA 25 UG/H MATRIXPFL 5.78 MG/PF) CHANGE EVERY 3 DAYS)
     Route: 065
  12. FENTANYL [Suspect]
     Active Substance: FENTANYL\FENTANYL CITRATE
     Dosage: (OUTLET TRIAL WITH FENTANYL PATCH)
     Route: 065
  13. FERRO-SANOL DUODENAL [Suspect]
     Active Substance: FERROUS GLYCINE SULFATE
     Indication: Product used for unknown indication
     Dosage: 100 MG (1X1)
     Route: 048
  14. FRESUBIN [Suspect]
     Active Substance: AMINO ACIDS\DEXTROSE\ELECTROLYTES NOS\SOYBEAN OIL\VITAMINS
     Indication: Product used for unknown indication
     Dosage: BID (ENERGY DRINK MIXED CARTON DRINKING BOTTLE)
     Route: 065
  15. DEXTROSE [Suspect]
     Active Substance: DEXTROSE\DEXTROSE MONOHYDRATE
     Indication: Parenteral nutrition
     Dosage: (AT AN UNSPECIFIED DOSE ONCE IN THE MORNING AS SHORT INFUSION)
     Route: 042
  16. CALCIUM CHLORIDE\DEXTROSE\POTASSIUM CHLORIDE\SODIUM CHLORIDE [Suspect]
     Active Substance: CALCIUM CHLORIDE\DEXTROSE\POTASSIUM CHLORIDE\SODIUM CHLORIDE
     Indication: Parenteral nutrition
     Dosage: (COMBINATION PREPARATION) 1000 ML ONCE IN THE MORNING DAILY RUN OVER 4-5 H
     Route: 042
  17. PANCRELIPASE [Suspect]
     Active Substance: PANCRELIPASE
     Indication: Product used for unknown indication
     Dosage: QID, (PANCREAS POWDER FROM PIG) (25000)
     Route: 065
  18. PANCRELIPASE [Suspect]
     Active Substance: PANCRELIPASE
     Dosage: QID, (PANCREAS POWDER FROM PIG) (25000)
     Route: 065
  19. PANCRELIPASE [Suspect]
     Active Substance: PANCRELIPASE
     Dosage: TID, (25000 INTERNATIONAL UNITS, 1-1-1, INCREASE ACCORDING TO DIET IF NECESSARY)
     Route: 065
  20. LEVOTHYROXINE SODIUM [Suspect]
     Active Substance: LEVOTHYROXINE SODIUM
     Indication: Product used for unknown indication
     Dosage: 50 MG, QD (50 MICROGRAM (50 HENNING) ONE PIECE IN THE MORNING)
     Route: 048
  21. SODIUM PICOSULFATE [Suspect]
     Active Substance: SODIUM PICOSULFATE
     Indication: Laxative supportive care
     Dosage: (LAXATIVE) FROM 3 DAY NO BOVEL MOVEMENT 18 DROPS (DOSAGE FORM: DROPS))
     Route: 065
  22. METFORMIN [Suspect]
     Active Substance: METFORMIN HYDROCHLORIDE
     Indication: Product used for unknown indication
     Dosage: 1000 MG, BID (1 A PHARMA) PIECE ONE IN THE MORNING AND ONE IN THE NIGHT)
     Route: 048
  23. MAGNESIUM [Suspect]
     Active Substance: MAGNESIUM
     Dosage: (300) PIECE ONCE IN THE NOON (BREAK)
     Route: 065
  24. MAGNESIUM [Suspect]
     Active Substance: MAGNESIUM
     Indication: Product used for unknown indication
     Dosage: 300 MG ONCE IN THE NIGHT
     Route: 048
  25. SODIUM CITRATE\SODIUM LAURYL SULFOACETATE\SORBITOL [Suspect]
     Active Substance: SODIUM CITRATE\SODIUM LAURYL SULFOACETATE\SORBITOL
     Indication: Product used for unknown indication
     Dosage: (RECTAL SOLUTION ENEMAS) (120.26)
     Route: 065
  26. MORPHINE [Suspect]
     Active Substance: MORPHINE
     Indication: Product used for unknown indication
     Dosage: 10 MG (HAMELN 10 MG INJECTION SOLUTION)
     Route: 065
  27. MOVICOL [Suspect]
     Active Substance: POLYETHYLENE GLYCOL 3350\POTASSIUM CHLORIDE\SODIUM BICARBONATE\SODIUM CHLORIDE
     Indication: Product used for unknown indication
     Dosage: 1 BAG IN THE MORNING
     Route: 065
  28. METAMIZOLE [Suspect]
     Active Substance: METAMIZOLE
     Indication: Product used for unknown indication
     Dosage: Q6H (1 A PHARMA) EVERY 6 HOURS (DOSAGE FORM: DROP)
     Route: 065
  29. OXYCODONE [Suspect]
     Active Substance: OXYCODONE
     Indication: Product used for unknown indication
     Dosage: (RET.) 5 MG (IF NEEDED: 1 PIECE IN CASE OF PAIN. PER INTAKE, MAX. EVERY 24 H 3.PCS.)
     Route: 048
  30. PROMETHAZINE [Suspect]
     Active Substance: PROMETHAZINE HYDROCHLORIDE
     Indication: Product used for unknown indication
     Dosage: (NEURAXPHARM) 10 DROPS AT NIGHT (DOSAGE FORM: DROP)
     Route: 065
  31. ROBINUL [Suspect]
     Active Substance: GLYCOPYRROLATE
     Indication: Product used for unknown indication
     Dosage: 0.2 MILLIGRAM PER MILLILITRE
     Route: 065
  32. AMINO ACIDS\DEXTROSE\ELECTROLYTES NOS\SOYBEAN OIL [Suspect]
     Active Substance: AMINO ACIDS\DEXTROSE\ELECTROLYTES NOS\SOYBEAN OIL
     Indication: Parenteral nutrition
     Dosage: 2200 KCAL FOR 24 H (MON-FRI) (PERIOPERATIVELY)
     Route: 042
  33. TAVOR (LORAZEPAM) [Suspect]
     Active Substance: LORAZEPAM
     Indication: Product used for unknown indication
     Dosage: (MELTING TABLETS)
     Route: 065
  34. VITAMIN B COMPLEX [Suspect]
     Active Substance: CYANOCOBALAMIN\DEXPANTHENOL\NIACINAMIDE\PYRIDOXINE HYDROCHLORIDE\RIBOFLAVIN 5^-PHOSPHATE SODIUM\THIA
     Indication: Product used for unknown indication
     Dosage: PIECE ONCE IN THE MORNING (BREAK)
     Route: 048
  35. VITAMIN D3 [Suspect]
     Active Substance: CHOLECALCIFEROL
     Dosage: 1 X 4 DAILY (DOSAGE FORM: DROP)
     Route: 065
  36. VITAMIN D3 [Suspect]
     Active Substance: CHOLECALCIFEROL
     Indication: Product used for unknown indication
     Dosage: TID (DROP ONCE IN THE MORNING, ONCE IN THE NOON AND ONCE IN THE NIGHT (BREAK))
     Route: 065
  37. FOLIC ACID [Concomitant]
     Active Substance: FOLIC ACID
     Indication: Product used for unknown indication
     Dosage: 10 MG, QW (24 HOURS AFTER MTX INTAKE) (CURRENTLY PAUSED)
     Route: 065
  38. FOLIC ACID [Concomitant]
     Active Substance: FOLIC ACID
     Dosage: 10 MG/WEEK (24 HOURS AFTER MTX INTAKE) (CURRENTLY PAUSED)
     Route: 065
  39. PREDNISONE [Concomitant]
     Active Substance: PREDNISONE
     Dosage: 2 MG, QD (1 X1 TABLET 10 PM)
     Route: 065
  40. PREDNISONE [Concomitant]
     Active Substance: PREDNISONE
     Indication: Product used for unknown indication
     Dosage: 5 MG, N
     Route: 065
  41. METHOTREXATE [Concomitant]
     Active Substance: METHOTREXATE
     Indication: Product used for unknown indication
     Dosage: 15 MG, QW (CURRENTLY PAUSED SINCE 09-JUL-2021)
     Route: 058
  42. PANTOPRAZOLE [Concomitant]
     Active Substance: PANTOPRAZOLE
     Indication: Product used for unknown indication
     Dosage: 40 MG, BID (1-0-1)
     Route: 065
  43. PREDNISOLONE [Concomitant]
     Active Substance: PREDNISOLONE
     Indication: Product used for unknown indication
     Dosage: 10 MG, QD
     Route: 065
  44. PREDNISOLONE [Concomitant]
     Active Substance: PREDNISOLONE
     Dosage: 5 MG, QD ((GALEN) PIECE ONCE IN THE NIGHT)
     Route: 048
  45. PREDNISOLONE [Concomitant]
     Active Substance: PREDNISOLONE
     Dosage: 5 MG, QD (DUE TO THE ONGOING REMISSION REDUCED THE PREDNISOLONE FROM 10 MG/DAY TO 5 MG/DAY, THIS DOS
     Route: 065
     Dates: start: 20230201
  46. PREDNISOLONE [Concomitant]
     Active Substance: PREDNISOLONE
     Dosage: 5 MG, QD (ONCE IN THE MORNING)
     Route: 065
  47. PREDNISOLONE [Concomitant]
     Active Substance: PREDNISOLONE
     Dosage: (IN AUG 2021 RECURRENCE AND INITIAL START OF PREDNISOLONE MONOTHERAPY (IN SEP-2021 THERAPY EXTENSION
     Route: 065
     Dates: start: 202108
  48. SULFASALAZINE [Concomitant]
     Active Substance: SULFASALAZINE
     Indication: Product used for unknown indication
     Dosage: UNK
     Route: 065

REACTIONS (10)
  - General physical health deterioration [Unknown]
  - Tachycardia [Unknown]
  - Body temperature increased [Unknown]
  - Drug hypersensitivity [Unknown]
  - Blood pressure decreased [Unknown]
  - Drug intolerance [Unknown]
  - Dehiscence [Unknown]
  - Chills [Unknown]
  - Diarrhoea [Unknown]
  - Abscess [Recovering/Resolving]
